FAERS Safety Report 5728698-6 (Version None)
Quarter: 2008Q2

REPORT INFORMATION
  Report Type: 
  Country: None (occurrence: None)
  Receive Date: 20080430
  Receipt Date: 20080115
  Transmission Date: 20081010
  Serious: No
  Sender: FDA-Public Use
  Company Number: 2008PV033952

PATIENT
  Age: 49 Year
  Sex: Male
  Weight: 87.5442 kg

DRUGS (4)
  1. SYMLIN [Suspect]
     Indication: TYPE 1 DIABETES MELLITUS
     Dosage: 42 MCG;TID;SC, 30 MCG;TID;SC, 18 MCG;TID;SC
     Route: 058
     Dates: start: 20071101, end: 20071101
  2. SYMLIN [Suspect]
     Indication: TYPE 1 DIABETES MELLITUS
     Dosage: 42 MCG;TID;SC, 30 MCG;TID;SC, 18 MCG;TID;SC
     Route: 058
     Dates: start: 20071101, end: 20071101
  3. SYMLIN [Suspect]
     Indication: TYPE 1 DIABETES MELLITUS
     Dosage: 42 MCG;TID;SC, 30 MCG;TID;SC, 18 MCG;TID;SC
     Route: 058
     Dates: start: 20071101
  4. HUMALOG [Concomitant]

REACTIONS (4)
  - LIBIDO INCREASED [None]
  - SOMNOLENCE [None]
  - THINKING ABNORMAL [None]
  - WEIGHT INCREASED [None]
